FAERS Safety Report 5794614-4 (Version None)
Quarter: 2008Q2

REPORT INFORMATION
  Report Type: 
  Country: None (occurrence: None)
  Receive Date: 20080627
  Receipt Date: 20080627
  Transmission Date: 20081010
  Serious: Yes (Hospitalization)
  Sender: FDA-Public Use
  Company Number: None

PATIENT
  Sex: Male
  Weight: 104.3273 kg

DRUGS (1)
  1. CLINDAMYCIN HCL [Suspect]
     Indication: TOOTH INFECTION
     Dosage: PO  TOOK MED 8-9 DAYS OF A 10 DAY RX
     Route: 048

REACTIONS (3)
  - ANGIOEDEMA [None]
  - DYSPHAGIA [None]
  - PALATAL OEDEMA [None]
